FAERS Safety Report 10577440 (Version 1)
Quarter: 2014Q4

REPORT INFORMATION
  Report Type: Spontaneous
  Country: DE (occurrence: DE)
  Receive Date: 20141111
  Receipt Date: 20141111
  Transmission Date: 20150529
  Serious: Yes (Hospitalization)
  Sender: FDA-Public Use
  Company Number: DE-ASTRAZENECA-2014SE83765

PATIENT
  Age: 69 Year
  Sex: Male

DRUGS (29)
  1. QUETIAPINE [Suspect]
     Active Substance: QUETIAPINE
     Route: 048
     Dates: start: 20130927, end: 20130929
  2. MIRTAZAPINE. [Suspect]
     Active Substance: MIRTAZAPINE
     Route: 048
     Dates: start: 20130924, end: 20130925
  3. LORAZEPAM. [Concomitant]
     Active Substance: LORAZEPAM
     Route: 048
     Dates: start: 20130924, end: 20131007
  4. TEGRETAL [Suspect]
     Active Substance: CARBAMAZEPINE
     Route: 048
     Dates: start: 20130927, end: 20130929
  5. TEGRETAL [Suspect]
     Active Substance: CARBAMAZEPINE
     Route: 048
     Dates: start: 20131004, end: 20131004
  6. LORAZEPAM. [Concomitant]
     Active Substance: LORAZEPAM
     Route: 048
     Dates: start: 20130923, end: 20130923
  7. QUETIAPINE [Suspect]
     Active Substance: QUETIAPINE
     Route: 048
     Dates: start: 20130919, end: 20130923
  8. TEGRETAL [Suspect]
     Active Substance: CARBAMAZEPINE
     Route: 048
     Dates: start: 20130924, end: 20130925
  9. TEGRETAL [Suspect]
     Active Substance: CARBAMAZEPINE
     Route: 048
     Dates: start: 20130926, end: 20130926
  10. TEGRETAL [Suspect]
     Active Substance: CARBAMAZEPINE
     Route: 048
     Dates: start: 20130930, end: 20130930
  11. MIRTAZAPINE. [Suspect]
     Active Substance: MIRTAZAPINE
     Route: 048
     Dates: start: 20130930, end: 20131001
  12. LORAZEPAM. [Concomitant]
     Active Substance: LORAZEPAM
     Route: 048
     Dates: start: 20131018, end: 20131023
  13. QUETIAPINE [Suspect]
     Active Substance: QUETIAPINE
     Dosage: 25-300 MG
     Route: 048
     Dates: start: 20130816, end: 20130911
  14. QUETIAPINE [Suspect]
     Active Substance: QUETIAPINE
     Route: 048
     Dates: start: 20130925, end: 20130926
  15. TEGRETAL [Suspect]
     Active Substance: CARBAMAZEPINE
     Route: 048
     Dates: start: 20131002, end: 20131002
  16. TEGRETAL [Suspect]
     Active Substance: CARBAMAZEPINE
     Route: 048
     Dates: start: 20131003, end: 20131003
  17. LORAZEPAM. [Concomitant]
     Active Substance: LORAZEPAM
     Route: 048
     Dates: start: 20130919, end: 20130919
  18. TEGRETAL [Suspect]
     Active Substance: CARBAMAZEPINE
     Route: 048
     Dates: start: 20131001, end: 20131001
  19. EUTHYROX [Concomitant]
     Active Substance: LEVOTHYROXINE SODIUM
     Route: 048
  20. QUETIAPINE [Suspect]
     Active Substance: QUETIAPINE
     Route: 048
     Dates: start: 20130912, end: 20130918
  21. TEGRETAL [Suspect]
     Active Substance: CARBAMAZEPINE
     Route: 048
     Dates: start: 20130923, end: 20130923
  22. MIRTAZAPINE. [Suspect]
     Active Substance: MIRTAZAPINE
     Route: 048
     Dates: start: 20131021
  23. LORAZEPAM. [Concomitant]
     Active Substance: LORAZEPAM
     Route: 048
     Dates: start: 20130920, end: 20130922
  24. LORAZEPAM. [Concomitant]
     Active Substance: LORAZEPAM
     Route: 048
     Dates: start: 20131024, end: 20131029
  25. QUETIAPINE [Suspect]
     Active Substance: QUETIAPINE
     Route: 048
     Dates: start: 20130924, end: 20130924
  26. TEGRETAL [Suspect]
     Active Substance: CARBAMAZEPINE
     Route: 048
     Dates: start: 20131005, end: 20131006
  27. MIRTAZAPINE. [Suspect]
     Active Substance: MIRTAZAPINE
     Route: 048
     Dates: start: 20130926, end: 20130929
  28. MIRTAZAPINE. [Suspect]
     Active Substance: MIRTAZAPINE
     Route: 048
     Dates: start: 20131002, end: 20131020
  29. LORAZEPAM. [Concomitant]
     Active Substance: LORAZEPAM
     Route: 048
     Dates: start: 20131008, end: 20131017

REACTIONS (2)
  - Faecaloma [Unknown]
  - Subileus [Recovered/Resolved]

NARRATIVE: CASE EVENT DATE: 20130925
